FAERS Safety Report 4791204-7 (Version None)
Quarter: 2005Q4

REPORT INFORMATION
  Report Type: 
  Country: None (occurrence: None)
  Receive Date: 20051005
  Receipt Date: 20050922
  Transmission Date: 20060501
  Serious: Yes (Life-Threatening)
  Sender: FDA-Public Use
  Company Number: 505#3#2005-01648

PATIENT
  Age: 80 Year

DRUGS (9)
  1. FURORESE 20 INJEKT (CZE) (FUROSEMIDE) [Suspect]
     Indication: LEFT VENTRICULAR FAILURE
     Dosage: 60 MILLIGRAM
     Route: 042
     Dates: start: 20050907, end: 20050911
  2. VEROSPIRON [Concomitant]
  3. ZOREM [Concomitant]
  4. CONCOR [Concomitant]
  5. TORVACARD [Concomitant]
  6. TENAXUM [Concomitant]
  7. MONOPRIL [Concomitant]
  8. LOZAP [Concomitant]
  9. WARFARIN [Concomitant]

REACTIONS (4)
  - CHEST PAIN [None]
  - CHILLS [None]
  - DYSPNOEA [None]
  - HYPERTENSIVE CRISIS [None]
